FAERS Safety Report 5820339-2 (Version None)
Quarter: 2008Q3

REPORT INFORMATION
  Report Type: 
  Country: None (occurrence: None)
  Receive Date: 20080724
  Receipt Date: 20070608
  Transmission Date: 20090109
  Serious: No
  Sender: FDA-Public Use
  Company Number: A0654874A

PATIENT
  Sex: Female

DRUGS (2)
  1. AVANDIA [Suspect]
     Dosage: 8MG TWICE PER DAY
     Route: 048
     Dates: start: 20050101, end: 20060101
  2. TOPROL-XL [Concomitant]

REACTIONS (2)
  - OVERDOSE [None]
  - TREMOR [None]
